FAERS Safety Report 20482005 (Version 1)
Quarter: 2022Q1

REPORT INFORMATION
  Report Type: Report from Study
  Country: CA (occurrence: CA)
  Receive Date: 20220216
  Receipt Date: 20220216
  Transmission Date: 20220423
  Serious: Yes (Other)
  Sender: FDA-Public Use
  Company Number: CA-Taiho Oncology Inc-EU-2022-00355

PATIENT
  Age: 67 Year
  Sex: Female
  Weight: 78.9 kg

DRUGS (3)
  1. LONSURF [Suspect]
     Active Substance: TIPIRACIL HYDROCHLORIDE\TRIFLURIDINE
     Indication: Colorectal cancer metastatic
     Dosage: CYCLE 1
     Route: 048
     Dates: start: 20211203
  2. LONSURF [Suspect]
     Active Substance: TIPIRACIL HYDROCHLORIDE\TRIFLURIDINE
     Dosage: CYCLE 2
     Route: 048
     Dates: start: 20220101
  3. LONSURF [Suspect]
     Active Substance: TIPIRACIL HYDROCHLORIDE\TRIFLURIDINE
     Dosage: CYCLE UNKNOWN
     Route: 048
     Dates: start: 20220126

REACTIONS (7)
  - Transfusion [Unknown]
  - Oral contusion [Recovered/Resolved]
  - Muscular weakness [Recovering/Resolving]
  - Lip exfoliation [Recovered/Resolved]
  - Decreased appetite [Recovering/Resolving]
  - Diarrhoea [Unknown]
  - Nausea [Unknown]
